FAERS Safety Report 4815156-6 (Version None)
Quarter: 2005Q4

REPORT INFORMATION
  Report Type: 
  Country: None (occurrence: None)
  Receive Date: 20051026
  Receipt Date: 20051014
  Transmission Date: 20060501
  Serious: Yes (Other)
  Sender: FDA-Public Use
  Company Number: 2005ADE/CIPRO-007

PATIENT
  Age: 78 Year
  Sex: Female

DRUGS (3)
  1. CIPROFLOXACIN-RATIOPHARM 250MG FILMTABLETTEN [Suspect]
     Indication: BACTERIAL INFECTION
     Dosage: 2 X 250MG, DAILY, ORAL
     Route: 048
     Dates: start: 20030114, end: 20030121
  2. CIPROFLOXACIN-RATIOPHARM 250MG FILMTABLETTEN [Suspect]
     Indication: NASOPHARYNGITIS
     Dosage: 2 X 250MG, DAILY, ORAL
     Route: 048
     Dates: start: 20030114, end: 20030121
  3. CIPROFLOXACIN-RATIOPHARM 250MG FILMTABLETTEN [Suspect]
     Indication: PHARYNGOLARYNGEAL PAIN
     Dosage: 2 X 250MG, DAILY, ORAL
     Route: 048
     Dates: start: 20030114, end: 20030121

REACTIONS (7)
  - APHONIA [None]
  - ARRHYTHMIA [None]
  - ASTHENIA [None]
  - CARDIAC DISORDER [None]
  - HEART RATE INCREASED [None]
  - LARYNGITIS [None]
  - SYNCOPE [None]
